FAERS Safety Report 16389155 (Version 1)
Quarter: 2019Q2

REPORT INFORMATION
  Report Type: Spontaneous
  Country: CN (occurrence: CN)
  Receive Date: 20190604
  Receipt Date: 20190604
  Transmission Date: 20190711
  Serious: Yes (Other)
  Sender: FDA-Public Use
  Company Number: CN-MYLANLABS-2019M1053330

PATIENT
  Age: 73 Year
  Sex: Female
  Weight: 45 kg

DRUGS (2)
  1. CALCITONIN SALMON MYLAN [Suspect]
     Active Substance: CALCITONIN SALMON
     Indication: OSTEOPOROSIS
     Dosage: 50 INTERNATIONAL UNIT, QD
     Route: 042
     Dates: start: 20190316, end: 20190319
  2. METHYCOBAL [Suspect]
     Active Substance: METHYLCOBALAMIN
     Indication: COMPLEX REGIONAL PAIN SYNDROME
     Dosage: 0.5 MILLIGRAM, QD
     Route: 041
     Dates: start: 20190316, end: 20190319

REACTIONS (2)
  - Palmar erythema [Recovering/Resolving]
  - Pruritus [Recovering/Resolving]

NARRATIVE: CASE EVENT DATE: 20190319
